FAERS Safety Report 10460953 (Version 4)
Quarter: 2014Q4

REPORT INFORMATION
  Report Type: Spontaneous
  Country: US (occurrence: None)
  Receive Date: 20140904
  Receipt Date: 20141105
  Transmission Date: 20150528
  Serious: Yes (Hospitalization, Other)
  Sender: FDA-Public Use
  Company Number: 003-230

PATIENT
  Sex: Female

DRUGS (5)
  1. ZYRTEC [Concomitant]
     Active Substance: CETIRIZINE HYDROCHLORIDE
  2. CROFAB [Suspect]
     Active Substance: CROTALIDAE POLYVALENT IMMUNE FAB (OVINE)
     Indication: SNAKE BITE
     Dosage: 4 VIALS TOTAL
     Dates: start: 20140624, end: 20140624
  3. TOPROL XL [Concomitant]
     Active Substance: METOPROLOL SUCCINATE
  4. CYMBALTA [Concomitant]
     Active Substance: DULOXETINE HYDROCHLORIDE
  5. ORTHO NOVUM [Concomitant]

REACTIONS (15)
  - Tachycardia [None]
  - Hypertension [None]
  - Wheezing [None]
  - Autonomic nervous system imbalance [None]
  - Metal poisoning [None]
  - Abasia [None]
  - Syncope [None]
  - Bradycardia [None]
  - Blood pressure diastolic increased [None]
  - Palpitations [None]
  - Dyspnoea [None]
  - Pain [None]
  - Gait disturbance [None]
  - Serum sickness [None]
  - Impaired work ability [None]

NARRATIVE: CASE EVENT DATE: 20140624
